FAERS Safety Report 10256912 (Version 1)
Quarter: 2014Q2

REPORT INFORMATION
  Report Type: Spontaneous
  Country: US (occurrence: US)
  Receive Date: 20140625
  Receipt Date: 20140625
  Transmission Date: 20141212
  Serious: No
  Sender: FDA-Public Use
  Company Number: US-AMGEN INC.-USASP2014046557

PATIENT
  Age: 38 Year
  Sex: Female

DRUGS (21)
  1. ENBREL [Suspect]
     Indication: RHEUMATOID ARTHRITIS
     Dosage: 50 MG, QWK
     Route: 058
     Dates: start: 20140415
  2. METFORMIN [Concomitant]
     Dosage: UNK
  3. GLIMEPIRIDE [Concomitant]
     Dosage: UNK
  4. ACTOPLUS MET XR [Concomitant]
     Dosage: UNK
  5. VESICARE [Concomitant]
     Dosage: UNK
  6. VITAMIN D                          /00107901/ [Concomitant]
     Dosage: UNK
  7. CYMBALTA [Concomitant]
     Dosage: UNK
  8. TOPROL [Concomitant]
     Dosage: UNK
  9. ATIVAN [Concomitant]
     Dosage: UNK
  10. FLEXERIL                           /00428402/ [Concomitant]
     Dosage: UNK
  11. LIPITOR [Concomitant]
     Dosage: UNK
  12. ASPIRIN [Concomitant]
     Dosage: UNK
  13. SYSTANE [Concomitant]
     Dosage: UNK
  14. NORCO [Concomitant]
     Dosage: UNK
  15. ALLEGRA [Concomitant]
     Dosage: UNK
  16. FLONASE                            /00908302/ [Concomitant]
     Dosage: UNK
  17. GRALISE [Concomitant]
     Dosage: UNK
  18. TOPAMAX [Concomitant]
     Dosage: UNK
  19. AMITRIPTYLINE [Concomitant]
     Dosage: UNK
  20. VICTOZA [Concomitant]
     Dosage: UNK
  21. LANTUS [Concomitant]
     Dosage: UNK

REACTIONS (5)
  - Injection site reaction [Recovered/Resolved]
  - Injection site warmth [Unknown]
  - Injection site erythema [Unknown]
  - Injection site pruritus [Unknown]
  - Injection site urticaria [Unknown]
